FAERS Safety Report 12178938 (Version 1)
Quarter: 2016Q1

REPORT INFORMATION
  Report Type: Report from Study
  Country: JP (occurrence: JP)
  Receive Date: 20160315
  Receipt Date: 20160315
  Transmission Date: 20160526
  Serious: Yes (Death, Other)
  Sender: FDA-Public Use
  Company Number: PHHY2009JP33001

PATIENT
  Age: 57 Year
  Sex: Male
  Weight: 54 kg

DRUGS (7)
  1. ICL670A [Suspect]
     Active Substance: DEFERASIROX
     Indication: IRON OVERLOAD
  2. DEPAS [Concomitant]
     Active Substance: ETIZOLAM
     Indication: POSTRENAL FAILURE
     Dosage: 0.5 MG, UNK
     Route: 048
     Dates: start: 20081224
  3. RED BLOOD CELLS, CONCENTRATED [Concomitant]
     Active Substance: HUMAN RED BLOOD CELL
     Dosage: 10 UNITS EVERY WEEK
     Route: 065
     Dates: end: 20090216
  4. ICL670A [Suspect]
     Active Substance: DEFERASIROX
     Indication: LYMPHOMA
     Dosage: 1000 MG, QD
     Route: 048
     Dates: start: 20081224
  5. TAKEPRON [Concomitant]
     Active Substance: LANSOPRAZOLE
     Indication: POSTRENAL FAILURE
     Dosage: 15 MG, UNK
     Route: 048
     Dates: start: 20081224
  6. NAUZELIN [Concomitant]
     Active Substance: DOMPERIDONE
     Indication: POSTRENAL FAILURE
     Dosage: 10 MG, UNK
     Route: 048
     Dates: start: 20081224
  7. RED BLOOD CELLS, CONCENTRATED [Concomitant]
     Active Substance: HUMAN RED BLOOD CELL
     Indication: PRODUCT USED FOR UNKNOWN INDICATION
     Dosage: 2 UNITS EVERY TWO WEEKS
     Route: 065
     Dates: start: 20081218

REACTIONS (10)
  - Immunodeficiency [Unknown]
  - Malignant neoplasm progression [Fatal]
  - Blood creatinine increased [Unknown]
  - Aspartate aminotransferase increased [Unknown]
  - Platelet count decreased [Unknown]
  - Haemoglobin decreased [Unknown]
  - Blood lactate dehydrogenase increased [Unknown]
  - Pneumonia cytomegaloviral [Fatal]
  - Lymphoma [Fatal]
  - Blood urea increased [Unknown]

NARRATIVE: CASE EVENT DATE: 20090217
